FAERS Safety Report 6698694-3 (Version None)
Quarter: 2010Q2

REPORT INFORMATION
  Report Type: 
  Country: None (occurrence: None)
  Receive Date: 20100427
  Receipt Date: 20091008
  Transmission Date: 20101027
  Serious: No
  Sender: FDA-Public Use
  Company Number: US-ASTRAZENECA-2009SE18857

PATIENT
  Age: 29 Year
  Sex: Female

DRUGS (1)
  1. ZOMIG [Suspect]

REACTIONS (2)
  - DRUG DOSE OMISSION [None]
  - MIGRAINE [None]
